FAERS Safety Report 10784854 (Version 3)
Quarter: 2015Q3

REPORT INFORMATION
  Report Type: Spontaneous
  Country: US (occurrence: US)
  Receive Date: 20150211
  Receipt Date: 20150806
  Transmission Date: 20151125
  Serious: No
  Sender: FDA-Public Use
  Company Number: US-GLAXOSMITHKLINE-A1071952A

PATIENT

DRUGS (1)
  1. LAMICTAL [Suspect]
     Active Substance: LAMOTRIGINE
     Indication: EPILEPSY
     Dosage: 150 MG, U
     Route: 065
     Dates: start: 2006

REACTIONS (3)
  - Accident at work [Unknown]
  - Road traffic accident [Unknown]
  - Back pain [Unknown]

NARRATIVE: CASE EVENT DATE: 2006
